FAERS Safety Report 8516193-0 (Version None)
Quarter: 2012Q3

REPORT INFORMATION
  Report Type: 
  Country: None (occurrence: None)
  Receive Date: 20120717
  Receipt Date: 20120711
  Transmission Date: 20120928
  Serious: Yes (Hospitalization, Other)
  Sender: FDA-Public Use
  Company Number: CA-ROCHE-GNE320568

PATIENT
  Sex: Male

DRUGS (2)
  1. XOLAIR [Suspect]
     Indication: ASTHMA
     Dosage: 150 MG, Q4W
     Route: 058
     Dates: start: 20100920
  2. XOLAIR [Suspect]
     Dates: start: 20101115

REACTIONS (6)
  - BACK PAIN [None]
  - NEPHROLITHIASIS [None]
  - HYPERHIDROSIS [None]
  - PRURITUS [None]
  - OEDEMA PERIPHERAL [None]
  - MALAISE [None]
